FAERS Safety Report 16303581 (Version 2)
Quarter: 2019Q2

REPORT INFORMATION
  Report Type: Spontaneous
  Country: CN (occurrence: CN)
  Receive Date: 20190513
  Receipt Date: 20190520
  Transmission Date: 20190711
  Serious: Yes (Life-Threatening, Other)
  Sender: FDA-Public Use
  Company Number: CN-LUPIN PHARMACEUTICALS INC.-2019-02908

PATIENT
  Age: 3 Year
  Sex: Female

DRUGS (4)
  1. LEVETIRACETAM. [Suspect]
     Active Substance: LEVETIRACETAM
     Indication: MYOCLONIC EPILEPSY
     Dosage: 2 MILLILITER, BID
     Dates: start: 201606, end: 201608
  2. LEVETIRACETAM. [Suspect]
     Active Substance: LEVETIRACETAM
     Dosage: 2.5 MILLILITER, BID
     Route: 065
     Dates: start: 201608, end: 2016
  3. LEVETIRACETAM. [Suspect]
     Active Substance: LEVETIRACETAM
     Dosage: 1.5 MILLILITER, BID
     Route: 065
     Dates: start: 2016, end: 201612
  4. LEVETIRACETAM. [Suspect]
     Active Substance: LEVETIRACETAM
     Dosage: 1 MILLILITER, BID
     Route: 065
     Dates: start: 201612

REACTIONS (2)
  - Drug ineffective [Unknown]
  - Infantile spasms [Recovered/Resolved]

NARRATIVE: CASE EVENT DATE: 201608
